FAERS Safety Report 18531526 (Version 2)
Quarter: 2020Q4

REPORT INFORMATION
  Report Type: Spontaneous
  Country: JP (occurrence: JP)
  Receive Date: 20201122
  Receipt Date: 20201224
  Transmission Date: 20210114
  Serious: Yes (Hospitalization)
  Sender: FDA-Public Use
  Company Number: JP-AMGEN-JPNSP2020185587

PATIENT
  Age: 85 Year
  Sex: Female
  Weight: 40 kg

DRUGS (5)
  1. PRALIA [Suspect]
     Active Substance: DENOSUMAB
     Indication: OSTEOPOROSIS
     Dosage: 60 MILLIGRAM, Q6MO
     Route: 058
     Dates: start: 20190905
  2. ELDECALCITOL [Suspect]
     Active Substance: ELDECALCITOL
     Dosage: 0.5 MICROGRAM, QD
     Route: 048
     Dates: start: 20200416, end: 20200419
  3. ELDECALCITOL [Suspect]
     Active Substance: ELDECALCITOL
     Indication: PRODUCT USED FOR UNKNOWN INDICATION
     Dosage: 0.5UG/DAY
     Route: 048
     Dates: end: 20200305
  4. ELDECALCITOL [Suspect]
     Active Substance: ELDECALCITOL
     Dosage: 0.5 MICROGRAM, QD  *SINGLE
     Route: 048
     Dates: start: 20200502
  5. ELDECALCITOL [Suspect]
     Active Substance: ELDECALCITOL
     Dosage: 0.75 MICROGRAM, QD
     Route: 048
     Dates: start: 20200420, end: 20200501

REACTIONS (2)
  - Hypocalcaemia [Recovered/Resolved]
  - Hypercalcaemia [Unknown]

NARRATIVE: CASE EVENT DATE: 20200415
